FAERS Safety Report 6062227-5 (Version None)
Quarter: 2009Q1

REPORT INFORMATION
  Report Type: 
  Country: None (occurrence: None)
  Receive Date: 20090203
  Receipt Date: 20090128
  Transmission Date: 20090719
  Serious: Yes (Hospitalization)
  Sender: FDA-Public Use
  Company Number: FR-BAYER-200912231GPV

PATIENT
  Age: 29 Year
  Sex: Female

DRUGS (7)
  1. IZILOX [Suspect]
     Indication: DRUG USE FOR UNKNOWN INDICATION
     Dosage: TOTAL DAILY DOSE: 400 MG  UNIT DOSE: 400 MG
     Route: 048
     Dates: start: 20090102, end: 20090106
  2. SOLUPRED [Suspect]
     Indication: DRUG USE FOR UNKNOWN INDICATION
     Dosage: TOTAL DAILY DOSE: 50 MG  UNIT DOSE: 50 MG
     Route: 048
     Dates: start: 20090102, end: 20090106
  3. PREVISCAN [Suspect]
     Indication: PORTAL VEIN THROMBOSIS
     Route: 048
     Dates: start: 20080701, end: 20090106
  4. CELLCEPT [Concomitant]
     Indication: DRUG USE FOR UNKNOWN INDICATION
     Dosage: UNIT DOSE: 500 MG
     Route: 065
  5. KENZEN [Concomitant]
     Indication: DRUG USE FOR UNKNOWN INDICATION
     Dosage: UNIT DOSE: 4 MG
     Route: 065
  6. PYOSTACINE [Concomitant]
     Indication: ACUTE SINUSITIS
     Route: 065
     Dates: start: 20081222
  7. ZECLAR [Concomitant]
     Indication: ACUTE SINUSITIS
     Dates: start: 20081225, end: 20081227

REACTIONS (5)
  - HEADACHE [None]
  - HEMIPARESIS [None]
  - INTERNATIONAL NORMALISED RATIO INCREASED [None]
  - PARAESTHESIA [None]
  - SUBDURAL HAEMATOMA [None]
